FAERS Safety Report 17497178 (Version 1)
Quarter: 2020Q1

REPORT INFORMATION
  Report Type: Spontaneous
  Country: US (occurrence: US)
  Receive Date: 20200304
  Receipt Date: 20200304
  Transmission Date: 20200409
  Serious: Yes (Life-Threatening, Hospitalization)
  Sender: FDA-Public Use
  Company Number: None

PATIENT
  Age: 2 Year
  Sex: Male
  Weight: 13.5 kg

DRUGS (3)
  1. OTC PROBIOTIC [Concomitant]
  2. FLINTSTONE MULTIVITAMIN [Concomitant]
  3. PROMACTA [Suspect]
     Active Substance: ELTROMBOPAG OLAMINE
     Indication: THROMBOCYTOPENIC PURPURA
     Dosage: ?          QUANTITY:1 TABLET(S);?
     Route: 048
     Dates: start: 20190205, end: 20190410

REACTIONS (5)
  - Metabolic acidosis [None]
  - Hyperammonaemia [None]
  - Lactic acidosis [None]
  - Encephalopathy [None]
  - Respiratory failure [None]

NARRATIVE: CASE EVENT DATE: 20190412
